FAERS Safety Report 8992141 (Version 1)
Quarter: 2012Q4

REPORT INFORMATION
  Report Type: Report from Study
  Country: DE (occurrence: DE)
  Receive Date: 20121231
  Receipt Date: 20121231
  Transmission Date: 20130627
  Serious: Yes (Hospitalization)
  Sender: FDA-Public Use
  Company Number: DE-ROCHE-1172671

PATIENT
  Sex: Female

DRUGS (2)
  1. TOCILIZUMAB [Suspect]
     Indication: PRODUCT USED FOR UNKNOWN INDICATION
     Dosage: cumulative dose 720 mg
     Route: 065
     Dates: start: 201009
  2. PREDNISOLON [Concomitant]
     Route: 065

REACTIONS (1)
  - Thyroidectomy [Recovered/Resolved]
